FAERS Safety Report 9476509 (Version 1)
Quarter: 2013Q3

REPORT INFORMATION
  Report Type: Spontaneous
  Country: US (occurrence: None)
  Receive Date: 20130823
  Receipt Date: 20130823
  Transmission Date: 20140515
  Serious: No
  Sender: FDA-Public Use
  Company Number: None

PATIENT
  Sex: Female

DRUGS (1)
  1. FORTEO [Suspect]
     Dosage: Q 3RD DAY
     Route: 058
     Dates: start: 20130810

REACTIONS (2)
  - Arthralgia [None]
  - Local swelling [None]
